FAERS Safety Report 24841547 (Version 1)
Quarter: 2025Q1

REPORT INFORMATION
  Report Type: Spontaneous
  Country: SE (occurrence: SE)
  Receive Date: 20250114
  Receipt Date: 20250114
  Transmission Date: 20250408
  Serious: Yes (Hospitalization)
  Sender: FRESENIUS KABI
  Company Number: None

PATIENT
  Age: 55 Year
  Sex: Female

DRUGS (1)
  1. PIPERACILLIN SODIUM\TAZOBACTAM SODIUM [Suspect]
     Active Substance: PIPERACILLIN SODIUM\TAZOBACTAM SODIUM
     Indication: Soft tissue infection
     Dosage: FOA: POWDER FOR SOLUTION FOR INFUSION
     Route: 042
     Dates: start: 20240820, end: 20240909

REACTIONS (4)
  - Pyrexia [Recovered/Resolved]
  - Rash [Recovered/Resolved]
  - Hepatic enzyme increased [Recovered/Resolved]
  - General physical health deterioration [Recovered/Resolved]

NARRATIVE: CASE EVENT DATE: 20240906
